FAERS Safety Report 6638301-9 (Version None)
Quarter: 2010Q1

REPORT INFORMATION
  Report Type: 
  Country: None (occurrence: None)
  Receive Date: 20100317
  Receipt Date: 20100312
  Transmission Date: 20100710
  Serious: Yes (Other)
  Sender: FDA-Public Use
  Company Number: BR-ROCHE-690987

PATIENT
  Sex: Male

DRUGS (3)
  1. CLONAZEPAM [Suspect]
     Indication: DRUG USE FOR UNKNOWN INDICATION
     Route: 065
  2. CLONAZEPAM [Interacting]
     Route: 065
  3. PROLOPA [Interacting]
     Indication: PARKINSONISM
     Route: 065
     Dates: start: 20100201

REACTIONS (3)
  - DRUG INTERACTION [None]
  - INSOMNIA [None]
  - PARKINSONISM [None]
